FAERS Safety Report 9271779 (Version 1)
Quarter: 2013Q2

REPORT INFORMATION
  Report Type: Spontaneous
  Country: US (occurrence: US)
  Receive Date: 20130506
  Receipt Date: 20130506
  Transmission Date: 20140414
  Serious: No
  Sender: FDA-Public Use
  Company Number: US-009507513-1305USA002111

PATIENT
  Sex: Male

DRUGS (2)
  1. CLARITIN-D [Suspect]
     Indication: SECRETION DISCHARGE
     Dosage: UNK, UNKNOWN
     Route: 048
  2. CLARITIN-D [Suspect]
     Indication: MEDICAL OBSERVATION

REACTIONS (1)
  - Drug ineffective for unapproved indication [Unknown]
